FAERS Safety Report 6626495-0 (Version None)
Quarter: 2010Q1

REPORT INFORMATION
  Report Type: 
  Country: None (occurrence: None)
  Receive Date: 20100309
  Receipt Date: 20100309
  Transmission Date: 20100710
  Serious: No
  Sender: FDA-Public Use
  Company Number: None

PATIENT
  Age: 61 Year
  Sex: Female
  Weight: 99.7913 kg

DRUGS (1)
  1. DOXYCYCLINE HCL [Suspect]
     Indication: BRONCHITIS
     Dosage: 1 CAPSUL TWICE DAILY PO
     Route: 048
     Dates: start: 20100307, end: 20100307

REACTIONS (9)
  - BURNING SENSATION [None]
  - DIARRHOEA [None]
  - DISORIENTATION [None]
  - FEELING ABNORMAL [None]
  - FEELING HOT [None]
  - PALPITATIONS [None]
  - PERIPHERAL COLDNESS [None]
  - RASH ERYTHEMATOUS [None]
  - URTICARIA [None]
